FAERS Safety Report 5168944-3 (Version None)
Quarter: 2006Q4

REPORT INFORMATION
  Report Type: 
  Country: None (occurrence: None)
  Receive Date: 20061211
  Receipt Date: 20061110
  Transmission Date: 20070319
  Serious: Yes (Other)
  Sender: FDA-Public Use
  Company Number: US-GLAXOSMITHKLINE-A0627044A

PATIENT
  Age: 43 Year
  Sex: Female

DRUGS (2)
  1. AUGMENTIN '125' [Suspect]
     Indication: ACUTE SINUSITIS
     Dosage: 1TAB SINGLE DOSE
     Route: 048
     Dates: start: 20061030, end: 20061030
  2. BIRTH CONTROL [Concomitant]

REACTIONS (1)
  - HAEMATEMESIS [None]
